FAERS Safety Report 24019084 (Version 1)
Quarter: 2024Q2

REPORT INFORMATION
  Report Type: Spontaneous
  Country: US (occurrence: None)
  Receive Date: 20240626
  Receipt Date: 20240626
  Transmission Date: 20240715
  Serious: Yes (Death)
  Sender: FDA-Public Use
  Company Number: None

PATIENT
  Age: 61 Year
  Sex: Female

DRUGS (1)
  1. LENALIDOMIDE [Suspect]
     Active Substance: LENALIDOMIDE
     Indication: Plasma cell myeloma
     Dosage: 5MG QD ORAL?
     Route: 048
     Dates: start: 20180221, end: 20240615

REACTIONS (4)
  - Septic shock [None]
  - Pyoderma gangrenosum [None]
  - Dry gangrene [None]
  - Dialysis [None]

NARRATIVE: CASE EVENT DATE: 20240615
